FAERS Safety Report 14990119 (Version 2)
Quarter: 2018Q2

REPORT INFORMATION
  Report Type: Other
  Country: JP (occurrence: JP)
  Receive Date: 20180608
  Receipt Date: 20180618
  Transmission Date: 20180711
  Serious: Yes (Hospitalization, Other)
  Sender: FDA-Public Use
  Company Number: JP-SHIRE-JP201820455AA

PATIENT

DRUGS (7)
  1. FEIBA NF [Suspect]
     Active Substance: ANTI-INHIBITOR COAGULANT COMPLEX
     Dosage: UNK UNK, UNKNOWN
     Route: 042
     Dates: start: 20170130
  2. NOVOSEVEN [Concomitant]
     Active Substance: COAGULATION FACTOR VIIA RECOMBINANT HUMAN
     Indication: PROPHYLAXIS
  3. FEIBA NF [Suspect]
     Active Substance: ANTI-INHIBITOR COAGULANT COMPLEX
     Indication: PROPHYLAXIS
     Dosage: 100 IU/KG, 2X A WEEK
     Route: 042
     Dates: start: 20170831
  4. FEIBA NF [Suspect]
     Active Substance: ANTI-INHIBITOR COAGULANT COMPLEX
     Indication: HAEMOSTASIS
     Dosage: 100 IU/KG, 3X A WEEK
     Route: 042
     Dates: start: 20170509, end: 20170830
  5. NOVOSEVEN [Concomitant]
     Active Substance: COAGULATION FACTOR VIIA RECOMBINANT HUMAN
     Indication: FACTOR VIII DEFICIENCY
     Dosage: UNK, 1X/WEEK
     Route: 065
     Dates: start: 20170130
  6. NOVOSEVEN [Concomitant]
     Active Substance: COAGULATION FACTOR VIIA RECOMBINANT HUMAN
     Indication: HAEMOSTASIS
     Dosage: UNK
     Route: 065
     Dates: start: 20170831
  7. FEIBA NF [Suspect]
     Active Substance: ANTI-INHIBITOR COAGULANT COMPLEX
     Indication: FACTOR VIII DEFICIENCY
     Dosage: 100 IU/KG, QOD
     Route: 042
     Dates: start: 20170130

REACTIONS (7)
  - Haemarthrosis [Unknown]
  - Haemarthrosis [Unknown]
  - Subcutaneous haematoma [Unknown]
  - Melaena [Unknown]
  - Muscle haemorrhage [Unknown]
  - Haemorrhage subcutaneous [Unknown]
  - Haemorrhage [Recovering/Resolving]

NARRATIVE: CASE EVENT DATE: 2017
